FAERS Safety Report 7310356-8 (Version None)
Quarter: 2011Q1

REPORT INFORMATION
  Report Type: 
  Country: None (occurrence: None)
  Receive Date: 20110211
  Receipt Date: 20090127
  Transmission Date: 20110831
  Serious: Yes (Death)
  Sender: FDA-Public Use
  Company Number: UTC-005008

PATIENT
  Age: 84 Year
  Sex: Female

DRUGS (1)
  1. REMODULIN [Suspect]
     Dosage: INTRAVENOUS
     Route: 042

REACTIONS (2)
  - DIARRHOEA [None]
  - UNEVALUABLE EVENT [None]
